FAERS Safety Report 7236260-1 (Version None)
Quarter: 2011Q1

REPORT INFORMATION
  Report Type: 
  Country: None (occurrence: None)
  Receive Date: 20110120
  Receipt Date: 20110111
  Transmission Date: 20110831
  Serious: Yes (Hospitalization, Disabling)
  Sender: FDA-Public Use
  Company Number: US-MERCK-0908USA01335

PATIENT
  Age: 59 Year
  Sex: Female

DRUGS (4)
  1. FOSAMAX [Suspect]
     Indication: OSTEOPOROSIS PROPHYLAXIS
     Route: 048
     Dates: start: 19980701, end: 20061201
  2. PREMPRO [Concomitant]
     Route: 065
     Dates: start: 19980701, end: 20020901
  3. FOSAMAX [Suspect]
     Route: 048
     Dates: start: 20070801, end: 20070901
  4. FOSAMAX [Suspect]
     Route: 048
     Dates: start: 19980701

REACTIONS (21)
  - ASTHMA [None]
  - LUMBAR RADICULOPATHY [None]
  - INTERVERTEBRAL DISC DEGENERATION [None]
  - FEMUR FRACTURE [None]
  - PAIN IN EXTREMITY [None]
  - SCOLIOSIS [None]
  - GASTROOESOPHAGEAL REFLUX DISEASE [None]
  - OSTEOPOROSIS [None]
  - OVERDOSE [None]
  - ANXIETY [None]
  - DERMATITIS CONTACT [None]
  - FRACTURE DELAYED UNION [None]
  - GASTRITIS [None]
  - DIVERTICULUM [None]
  - LOW TURNOVER OSTEOPATHY [None]
  - SPINAL OSTEOARTHRITIS [None]
  - LUMBAR SPINAL STENOSIS [None]
  - SUPRAVENTRICULAR TACHYCARDIA [None]
  - NEUTROPENIA [None]
  - BACK PAIN [None]
  - INTERMITTENT CLAUDICATION [None]
